FAERS Safety Report 21201358 (Version 1)
Quarter: 2022Q3

REPORT INFORMATION
  Report Type: Spontaneous
  Country: IE (occurrence: IE)
  Receive Date: 20220811
  Receipt Date: 20220811
  Transmission Date: 20221026
  Serious: Yes (Hospitalization)
  Sender: FDA-Public Use
  Company Number: IE-MYLANLABS-2022M1084695

PATIENT
  Age: 81 Year
  Sex: Male

DRUGS (3)
  1. IBUPROFEN [Suspect]
     Active Substance: IBUPROFEN
     Indication: Product used for unknown indication
     Dosage: 2 DOSAGE FORM
     Route: 048
  2. BUTYLSCOPOLAMINE BROMIDE [Concomitant]
     Active Substance: BUTYLSCOPOLAMINE BROMIDE
     Indication: Dysphagia
     Dosage: UNK
     Route: 065
  3. GLUCAGON [Concomitant]
     Active Substance: GLUCAGON
     Indication: Dysphagia
     Dosage: UNK
     Route: 065

REACTIONS (2)
  - Oesophageal obstruction [Recovered/Resolved]
  - Oesophageal oedema [Recovered/Resolved]
